FAERS Safety Report 24862535 (Version 2)
Quarter: 2025Q1

REPORT INFORMATION
  Report Type: Spontaneous
  Country: US (occurrence: US)
  Receive Date: 20250120
  Receipt Date: 20250131
  Transmission Date: 20250409
  Serious: Yes (Death, Hospitalization)
  Sender: TEVA
  Company Number: US-TEVA-VS-3287527

PATIENT
  Age: 75 Year
  Sex: Male

DRUGS (1)
  1. LACTULOSE [Suspect]
     Active Substance: LACTULOSE
     Indication: Hepatic encephalopathy
     Dosage: TWO DOSES ADMINISTERED THREE HOURS APART
     Route: 065

REACTIONS (2)
  - Large intestine perforation [Fatal]
  - Pneumoperitoneum [Fatal]
